FAERS Safety Report 7893661 (Version 4)
Quarter: 2013Q4

REPORT INFORMATION
  Report Type: Report from Study
  Country: BR (occurrence: BR)
  Receive Date: 20110411
  Receipt Date: 20131024
  Transmission Date: 20140711
  Serious: Yes (Hospitalization, Other)
  Sender: FDA-Public Use
  Company Number: PHHY2011BR27350

PATIENT
  Sex: Male
  Weight: 75 kg

DRUGS (3)
  1. DIOVAN AMLO FIX [Suspect]
     Indication: HYPERTENSION
     Dosage: 1 DF, (VALS 160 MG/AMLO 5 MG) BID
     Route: 048
  2. MAREVAN [Concomitant]
     Indication: COAGULOPATHY
     Dosage: 1 DF, (5 MG) DAILY
     Route: 048
  3. AAS [Concomitant]
     Indication: PLATELET AGGREGATION INHIBITION
     Dosage: 1 DF, DAILY
     Route: 048

REACTIONS (2)
  - Ischaemic stroke [Recovered/Resolved]
  - Gait disturbance [Unknown]
